FAERS Safety Report 19883225 (Version 2)
Quarter: 2021Q4

REPORT INFORMATION
  Report Type: Spontaneous
  Country: US (occurrence: US)
  Receive Date: 20210926
  Receipt Date: 20211105
  Transmission Date: 20220303
  Serious: No
  Sender: FDA-Public Use
  Company Number: US-SA-SAC20210923000252

PATIENT
  Age: 36 Year
  Sex: Male

DRUGS (5)
  1. DUPIXENT [Suspect]
     Active Substance: DUPILUMAB
     Indication: Nasal polyps
     Dosage: 300 MG, QOW
     Route: 058
     Dates: start: 20210902
  2. ALLEGRA D-12 HOUR [Concomitant]
     Active Substance: FEXOFENADINE HYDROCHLORIDE\PSEUDOEPHEDRINE HYDROCHLORIDE
     Indication: Hypersensitivity
  3. IBUPROFEN [Concomitant]
     Active Substance: IBUPROFEN
     Dosage: 325 MG
  4. TYLENOL [Concomitant]
     Active Substance: ACETAMINOPHEN
  5. MELATONIN [Concomitant]
     Active Substance: MELATONIN
     Dosage: 325 MG

REACTIONS (9)
  - Joint stiffness [Unknown]
  - Condition aggravated [Unknown]
  - Migraine [Unknown]
  - Sinus disorder [Unknown]
  - Anosmia [Unknown]
  - Ageusia [Unknown]
  - Rhinorrhoea [Unknown]
  - Drug ineffective [Unknown]
  - Arthralgia [Unknown]

NARRATIVE: CASE EVENT DATE: 20210101
